FAERS Safety Report 7456271-0 (Version None)
Quarter: 2011Q2

REPORT INFORMATION
  Report Type: 
  Country: None (occurrence: None)
  Receive Date: 20110503
  Receipt Date: 20110427
  Transmission Date: 20111010
  Serious: Yes (Other)
  Sender: FDA-Public Use
  Company Number: CA-ABBOTT-10P-028-0637377-00

PATIENT
  Sex: Female
  Weight: 90.8 kg

DRUGS (5)
  1. PANTOLOC [Concomitant]
     Indication: GASTRIC DISORDER
     Route: 048
     Dates: start: 20080101
  2. PROPYLTHIOURACIL [Concomitant]
     Indication: HYPERTHYROIDISM
     Route: 048
     Dates: start: 20080101
  3. HUMIRA [Suspect]
     Route: 058
     Dates: start: 20110408, end: 20110424
  4. HUMIRA [Suspect]
     Indication: RHEUMATOID ARTHRITIS
     Route: 058
     Dates: start: 20080729, end: 20110301
  5. CELEBREX [Suspect]
     Indication: PRODUCT USED FOR UNKNOWN INDICATION
     Dates: start: 20091101

REACTIONS (7)
  - PRURITUS [None]
  - ERYTHEMA [None]
  - CARTILAGE INJURY [None]
  - ARTHRALGIA [None]
  - FEELING HOT [None]
  - SWELLING FACE [None]
  - DRUG DOSE OMISSION [None]
